FAERS Safety Report 16797251 (Version 3)
Quarter: 2020Q3

REPORT INFORMATION
  Report Type: Spontaneous
  Country: JP (occurrence: JP)
  Receive Date: 20190912
  Receipt Date: 20200930
  Transmission Date: 20201102
  Serious: Yes (Hospitalization)
  Sender: FDA-Public Use
  Company Number: JP-AMGEN-JPNSP2019146393

PATIENT
  Age: 87 Year
  Sex: Female
  Weight: 49.7 kg

DRUGS (4)
  1. ROCALTROL [Concomitant]
     Active Substance: CALCITRIOL
     Indication: HYPERPARATHYROIDISM SECONDARY
     Dosage: 0.5 MICROGRAM, QWK
     Route: 042
  2. LANTHANUM CARBONATE. [Concomitant]
     Active Substance: LANTHANUM CARBONATE
     Dosage: 500 MILLIGRAM, QD
     Route: 065
  3. RIONA [Concomitant]
     Active Substance: FERRIC CITRATE ANHYDROUS
     Dosage: 500 MILLIGRAM, QD
     Route: 065
  4. PARSABIV [Suspect]
     Active Substance: ETELCALCETIDE HYDROCHLORIDE
     Indication: HYPERPARATHYROIDISM SECONDARY
     Dosage: 5 MILLIGRAM, 3 TIMES/WK
     Route: 010
     Dates: start: 20190618

REACTIONS (1)
  - Shunt stenosis [Recovered/Resolved]

NARRATIVE: CASE EVENT DATE: 20190717
